FAERS Safety Report 7323462-9 (Version None)
Quarter: 2011Q1

REPORT INFORMATION
  Report Type: 
  Country: None (occurrence: None)
  Receive Date: 20110301
  Receipt Date: 20110216
  Transmission Date: 20110831
  Serious: Yes (Other)
  Sender: FDA-Public Use
  Company Number: US-ACTELION-A-US2010-40211

PATIENT

DRUGS (21)
  1. NEXIUM [Concomitant]
  2. FLECAINIDE ACETATE [Concomitant]
  3. GLIMEPIRIDE [Concomitant]
  4. TRACLEER [Suspect]
     Indication: PULMONARY HYPERTENSION
     Dosage: 125 MG, BID
     Route: 048
     Dates: start: 20080111, end: 20100922
  5. MAG-OX [Concomitant]
  6. SPIRONOLACTONE [Concomitant]
  7. TIOTROPIUM [Concomitant]
  8. DIGOXIN [Concomitant]
  9. FOLIC ACID [Concomitant]
  10. LISINOPRIL [Concomitant]
  11. CRESTOR [Concomitant]
  12. ALBUTEROL [Concomitant]
  13. TRACLEER [Suspect]
     Dosage: 62.5 MG, BID
     Route: 048
     Dates: start: 20071017, end: 20080110
  14. DILTIAZEM [Concomitant]
  15. ASA [Concomitant]
  16. FLUNISOLIDE [Concomitant]
  17. MTV [Concomitant]
  18. OXYGEN [Concomitant]
  19. SUPER B COMPLEX [Concomitant]
  20. ADVAIR DISKUS 100/50 [Concomitant]
  21. NITROGLYCERIN [Concomitant]

REACTIONS (5)
  - PULMONARY HYPERTENSION [None]
  - EMPHYSEMA [None]
  - DYSPNOEA [None]
  - SLEEP APNOEA SYNDROME [None]
  - VENTILATION PERFUSION MISMATCH [None]
